FAERS Safety Report 6584677-0 (Version None)
Quarter: 2010Q1

REPORT INFORMATION
  Report Type: 
  Country: None (occurrence: None)
  Receive Date: 20100217
  Receipt Date: 20100112
  Transmission Date: 20100710
  Serious: Yes (Other)
  Sender: FDA-Public Use
  Company Number: GB-BAYER-GB-2007-012997

PATIENT
  Age: 45 Year
  Sex: Female

DRUGS (5)
  1. CAMPATH [Suspect]
     Indication: STEM CELL TRANSPLANT
     Dosage: UNK, UNK [FORM: AMPULE]
  2. FLUDARABINE [Suspect]
     Indication: STEM CELL TRANSPLANT
     Dosage: UNK, UNK
  3. BUSULPHAN [Suspect]
     Indication: STEM CELL TRANSPLANT
  4. PENICILLIN V [Concomitant]
     Dosage: UNIT DOSE: 250 MG
     Route: 048
  5. ACYCLOVIR [Concomitant]
     Dosage: UNIT DOSE: 200 MG
     Route: 048

REACTIONS (12)
  - ANGIOTENSIN CONVERTING ENZYME INCREASED [None]
  - ASPARTATE AMINOTRANSFERASE INCREASED [None]
  - BLOOD ALKALINE PHOSPHATASE INCREASED [None]
  - FIBROSIS [None]
  - GAMMA-GLUTAMYLTRANSFERASE INCREASED [None]
  - GRANULOMA SKIN [None]
  - GRANULOMATOUS LIVER DISEASE [None]
  - LIVER PALPABLE SUBCOSTAL [None]
  - LUNG NEOPLASM [None]
  - ORAL DISORDER [None]
  - SARCOIDOSIS [None]
  - SKIN LESION [None]
